FAERS Safety Report 7013345-6 (Version None)
Quarter: 2010Q3

REPORT INFORMATION
  Report Type: 
  Country: None (occurrence: None)
  Receive Date: 20100924
  Receipt Date: 20100917
  Transmission Date: 20110219
  Serious: No
  Sender: FDA-Public Use
  Company Number: US-B.I. PHARMACEUTICALS,INC./RIDGEFIELD-2010-BP-10692BP

PATIENT
  Sex: Female

DRUGS (6)
  1. SPIRIVA [Suspect]
     Indication: BRONCHITIS
     Dosage: 18 MCG
     Route: 055
     Dates: start: 20100901
  2. ATENOLOL [Concomitant]
     Indication: CARDIAC DISORDER
  3. ADALAT [Concomitant]
     Indication: CARDIAC DISORDER
  4. LIPITOR [Concomitant]
     Indication: BLOOD CHOLESTEROL INCREASED
  5. CALCIUM [Concomitant]
     Indication: PROPHYLAXIS
  6. VITAMIN D [Concomitant]
     Indication: PROPHYLAXIS

REACTIONS (3)
  - CONSTIPATION [None]
  - DRY MOUTH [None]
  - TOOTH DISORDER [None]
